FAERS Safety Report 24934916 (Version 1)
Quarter: 2025Q1

REPORT INFORMATION
  Report Type: Spontaneous
  Country: US (occurrence: US)
  Receive Date: 20250206
  Receipt Date: 20250206
  Transmission Date: 20250408
  Serious: Yes (Other)
  Sender: CSL BEHRING
  Company Number: US-BEH-2025194278

PATIENT
  Age: 41 Year
  Sex: Female

DRUGS (11)
  1. HIZENTRA [Suspect]
     Active Substance: HUMAN IMMUNOGLOBULIN G
     Indication: Hypogammaglobulinaemia
     Dosage: 4GM/20ML QW
     Route: 058
     Dates: start: 20240321
  2. ACETAMINOPHEN [Concomitant]
     Active Substance: ACETAMINOPHEN
  3. BUPROPION [Concomitant]
     Active Substance: BUPROPION
  4. CYMBALTA [Concomitant]
     Active Substance: DULOXETINE HYDROCHLORIDE
  5. DIPHENHYDRAMINE [Concomitant]
     Active Substance: DIPHENHYDRAMINE
  6. FOLIC ACID [Concomitant]
     Active Substance: FOLIC ACID
  7. LEVOTHYROXINE [Concomitant]
     Active Substance: LEVOTHYROXINE
  8. METHOTREXATE [Concomitant]
     Active Substance: METHOTREXATE
  9. RITUXAN HYCELA [Concomitant]
     Active Substance: HYALURONIDASE (HUMAN RECOMBINANT)\RITUXIMAB
  10. ROSUVASTATIN [Concomitant]
     Active Substance: ROSUVASTATIN
  11. SINGULAIR [Concomitant]
     Active Substance: MONTELUKAST SODIUM

REACTIONS (2)
  - Drug ineffective [Recovered/Resolved]
  - Product distribution issue [Recovered/Resolved]

NARRATIVE: CASE EVENT DATE: 20250101
